FAERS Safety Report 19202599 (Version 1)
Quarter: 2021Q2

REPORT INFORMATION
  Report Type: Spontaneous
  Country: US (occurrence: US)
  Receive Date: 20210430
  Receipt Date: 20210430
  Transmission Date: 20210717
  Serious: No
  Sender: FDA-Public Use
  Company Number: US-TEIKOKU PHARMA USA-TPU2021-00475

PATIENT
  Sex: Female

DRUGS (2)
  1. LIDODERM [Suspect]
     Active Substance: LIDOCAINE
     Indication: BACK PAIN
     Route: 061
     Dates: start: 2017, end: 2017
  2. LIDODERM [Suspect]
     Active Substance: LIDOCAINE
     Indication: SPINAL STENOSIS

REACTIONS (1)
  - Inability to afford medication [Unknown]

NARRATIVE: CASE EVENT DATE: 2017
